FAERS Safety Report 7071093-0 (Version None)
Quarter: 2010Q4

REPORT INFORMATION
  Report Type: 
  Country: None (occurrence: None)
  Receive Date: 20101029
  Receipt Date: 20101022
  Transmission Date: 20110411
  Serious: No
  Sender: FDA-Public Use
  Company Number: US-PFIZER INC-2010128205

PATIENT
  Sex: Female
  Weight: 100.68 kg

DRUGS (7)
  1. ZOLOFT [Suspect]
     Dosage: UNK
  2. PRISTIQ [Suspect]
     Indication: HOT FLUSH
     Dosage: 50 MG, DAILY
     Route: 048
     Dates: start: 20101001, end: 20101001
  3. LIPITOR [Concomitant]
     Indication: BLOOD CHOLESTEROL INCREASED
     Dosage: UNK
  4. CELEBREX [Concomitant]
     Indication: CARDIAC DISORDER
     Dosage: UNK
  5. WARFARIN [Concomitant]
     Indication: CARDIAC DISORDER
     Dosage: UNK
  6. DILTIAZEM [Concomitant]
     Indication: CARDIAC DISORDER
     Dosage: UNK
  7. ATENOLOL [Concomitant]
     Indication: CARDIAC DISORDER
     Dosage: UNK

REACTIONS (1)
  - HOT FLUSH [None]
